FAERS Safety Report 26190489 (Version 1)
Quarter: 2025Q4

REPORT INFORMATION
  Report Type: Spontaneous
  Country: CA (occurrence: CA)
  Receive Date: 20251223
  Receipt Date: 20251223
  Transmission Date: 20260117
  Serious: Yes (Hospitalization)
  Sender: SPECGX
  Company Number: CA-SPECGX-T202502028

PATIENT
  Age: 63 Year
  Sex: Female

DRUGS (9)
  1. METHADOSE [Suspect]
     Active Substance: METHADONE HYDROCHLORIDE
     Indication: Breast cancer metastatic
     Dosage: UNK
     Route: 061
  2. AMITRIPTYLINE [Suspect]
     Active Substance: AMITRIPTYLINE
     Indication: Breast cancer metastatic
     Dosage: UNK
     Route: 061
  3. HYDROMORPHONE [Suspect]
     Active Substance: HYDROMORPHONE
     Indication: Breast cancer metastatic
     Dosage: 3 MILLIGRAM, BID (1 EVERY .5 DAYS)
     Route: 048
  4. HYDROMORPHONE [Suspect]
     Active Substance: HYDROMORPHONE
     Dosage: 12 MILLIGRAM, Q12H
     Route: 048
  5. HYDROMORPHONE [Suspect]
     Active Substance: HYDROMORPHONE
     Dosage: UNK
     Route: 065
  6. KETAMINE [Suspect]
     Active Substance: KETAMINE
     Indication: Breast cancer metastatic
     Dosage: UNK
     Route: 061
  7. MORPHINE [Suspect]
     Active Substance: MORPHINE
     Indication: Breast cancer metastatic
     Dosage: UNK (1 EVERY 1 DAYS)
     Route: 065
  8. SUFENTANIL [Suspect]
     Active Substance: SUFENTANIL
     Indication: Breast cancer metastatic
     Dosage: UNK
     Route: 065
  9. TRANEXAMIC ACID [Suspect]
     Active Substance: TRANEXAMIC ACID
     Indication: Breast cancer metastatic
     Dosage: UNK
     Route: 061

REACTIONS (4)
  - Delirium [Recovered/Resolved]
  - Product use in unapproved indication [Unknown]
  - Incorrect route of product administration [Unknown]
  - Drug ineffective [Unknown]
